FAERS Safety Report 13953304 (Version 1)
Quarter: 2017Q3

REPORT INFORMATION
  Report Type: Spontaneous
  Country: US (occurrence: US)
  Receive Date: 20170911
  Receipt Date: 20170911
  Transmission Date: 20171128
  Serious: Yes (Hospitalization, Other)
  Sender: FDA-Public Use
  Company Number: US-ROCHE-1986550

PATIENT
  Sex: Male

DRUGS (1)
  1. ACTEMRA [Suspect]
     Active Substance: TOCILIZUMAB
     Indication: ANKYLOSING SPONDYLITIS
     Dosage: STRENGTH: 400 MG/20 ML
     Route: 042
     Dates: start: 20160112, end: 20170710

REACTIONS (7)
  - Pancreatitis [Unknown]
  - Hepatitis [Unknown]
  - Pneumonia [Unknown]
  - Cholecystitis [Unknown]
  - Off label use [Unknown]
  - Intentional product use issue [Unknown]
  - Thrombosis [Unknown]
